FAERS Safety Report 4975173-2 (Version None)
Quarter: 2006Q2

REPORT INFORMATION
  Report Type: 
  Country: None (occurrence: None)
  Receive Date: 20060418
  Receipt Date: 20060302
  Transmission Date: 20061013
  Serious: Yes (Other)
  Sender: FDA-Public Use
  Company Number: US-GLAXOSMITHKLINE-A0596012A

PATIENT
  Age: 62 Year
  Sex: Male
  Weight: 113.6 kg

DRUGS (2)
  1. AUGMENTIN '125' [Suspect]
     Indication: PROPHYLAXIS
     Dosage: 875MG TWICE PER DAY
     Route: 048
     Dates: start: 20050101, end: 20050101
  2. UNASYN [Concomitant]

REACTIONS (5)
  - FATIGUE [None]
  - HEADACHE [None]
  - OFF LABEL USE [None]
  - RASH [None]
  - TREMOR [None]
